FAERS Safety Report 7667450-1 (Version None)
Quarter: 2011Q3

REPORT INFORMATION
  Report Type: 
  Country: None (occurrence: None)
  Receive Date: 20110806
  Receipt Date: 20110407
  Transmission Date: 20111222
  Serious: No
  Sender: FDA-Public Use
  Company Number: US-ABBOTT-11P-163-0717302-00

PATIENT
  Sex: Male

DRUGS (2)
  1. NIASPAN [Suspect]
     Indication: PRODUCT USED FOR UNKNOWN INDICATION
  2. NIASPAN [Suspect]

REACTIONS (7)
  - BLOOD PRESSURE DECREASED [None]
  - PARAESTHESIA [None]
  - MUSCLE TIGHTNESS [None]
  - BLOOD GLUCOSE INCREASED [None]
  - HEADACHE [None]
  - FLUSHING [None]
  - FEELING HOT [None]
